FAERS Safety Report 17872330 (Version 4)
Quarter: 2020Q3

REPORT INFORMATION
  Report Type: Report from Study
  Country: CO (occurrence: CO)
  Receive Date: 20200608
  Receipt Date: 20200720
  Transmission Date: 20201103
  Serious: Yes (Hospitalization)
  Sender: FDA-Public Use
  Company Number: NVSC2020CO158408

PATIENT
  Age: 17 Year
  Sex: Male
  Weight: 65 kg

DRUGS (1)
  1. ILARIS [Suspect]
     Active Substance: CANAKINUMAB
     Indication: STILL^S DISEASE
     Dosage: 300 MG, QMO
     Route: 058
     Dates: start: 20200304

REACTIONS (13)
  - Pain [Unknown]
  - Macule [Unknown]
  - Nausea [Recovering/Resolving]
  - Muscle contractions involuntary [Recovering/Resolving]
  - Blood glucose increased [Recovered/Resolved]
  - Malaise [Unknown]
  - Hypersensitivity [Unknown]
  - Arthralgia [Unknown]
  - Headache [Recovering/Resolving]
  - Ear pain [Recovering/Resolving]
  - Urticaria [Unknown]
  - Dizziness [Recovering/Resolving]
  - Pruritus [Recovering/Resolving]

NARRATIVE: CASE EVENT DATE: 20200531
